FAERS Safety Report 6917263-0 (Version None)
Quarter: 2010Q3

REPORT INFORMATION
  Report Type: 
  Country: None (occurrence: None)
  Receive Date: 20100810
  Receipt Date: 20100803
  Transmission Date: 20110219
  Serious: Yes (Hospitalization)
  Sender: FDA-Public Use
  Company Number: JP-MERCK-1008USA00729

PATIENT
  Age: 79 Year
  Sex: Female

DRUGS (8)
  1. DECADRON [Suspect]
     Indication: MULTIPLE MYELOMA
     Route: 048
     Dates: start: 20050101
  2. DECADRON [Suspect]
     Route: 048
     Dates: start: 20080407, end: 20080410
  3. DECADRON [Suspect]
     Route: 048
     Dates: start: 20080317, end: 20080320
  4. BORTEZOMIB [Suspect]
     Indication: MULTIPLE MYELOMA
     Route: 065
     Dates: start: 20080317, end: 20080317
  5. BORTEZOMIB [Suspect]
     Route: 065
     Dates: start: 20080320, end: 20080320
  6. BORTEZOMIB [Suspect]
     Route: 065
     Dates: start: 20080410, end: 20080410
  7. BORTEZOMIB [Suspect]
     Route: 065
     Dates: start: 20080407, end: 20080407
  8. THALIDOMIDE [Suspect]
     Indication: MULTIPLE MYELOMA
     Route: 065
     Dates: start: 20050101

REACTIONS (2)
  - ACUTE MYOCARDIAL INFARCTION [None]
  - MYOCARDIAL ISCHAEMIA [None]
